FAERS Safety Report 16081118 (Version 2)
Quarter: 2019Q1

REPORT INFORMATION
  Report Type: Report from Study
  Country: None (occurrence: US)
  Receive Date: 20190316
  Receipt Date: 20190327
  Transmission Date: 20190418
  Serious: Yes (Other)
  Sender: FDA-Public Use
  Company Number: US-ABBVIE-19K-163-2704674-00

PATIENT
  Sex: Female
  Weight: 69.46 kg

DRUGS (1)
  1. HUMIRA [Suspect]
     Active Substance: ADALIMUMAB
     Indication: PSORIASIS
     Route: 058

REACTIONS (6)
  - Skin discolouration [Unknown]
  - Hernia [Unknown]
  - Impaired healing [Unknown]
  - Scab [Unknown]
  - Post procedural complication [Unknown]
  - Product dispensing error [Unknown]
